FAERS Safety Report 21815950 (Version 1)
Quarter: 2023Q1

REPORT INFORMATION
  Report Type: Spontaneous
  Country: CN (occurrence: None)
  Receive Date: 20230104
  Receipt Date: 20230104
  Transmission Date: 20230418
  Serious: Yes (Hospitalization)
  Sender: FDA-Public Use
  Company Number: CN-Orion Corporation ORION PHARMA-ENT 2023-0001

PATIENT
  Age: 67 Year
  Sex: Male

DRUGS (4)
  1. ENTACAPONE [Suspect]
     Active Substance: ENTACAPONE
     Indication: Parkinson^s disease
     Dosage: BID
     Route: 048
     Dates: start: 2019, end: 20221203
  2. LEVODOPA/ BENSERAZIDE HYDROCHLORIDE [Concomitant]
     Indication: Parkinson^s disease
     Dosage: BID, ONGOING
     Route: 048
     Dates: start: 2019
  3. PRAMIPEXOLE DIHYDROCHLORIDE [Concomitant]
     Active Substance: PRAMIPEXOLE DIHYDROCHLORIDE
     Indication: Parkinson^s disease
     Dosage: BID, ONGOING
     Route: 048
     Dates: start: 2019
  4. ESCITALOPRAM OXALATE [Concomitant]
     Active Substance: ESCITALOPRAM OXALATE
     Indication: Parkinson^s disease
     Route: 048
     Dates: start: 2019

REACTIONS (5)
  - Diarrhoea [Recovering/Resolving]
  - Metabolic acidosis [Unknown]
  - Hyponatraemia [Unknown]
  - Hypochloraemia [Unknown]
  - Hypokalaemia [Unknown]

NARRATIVE: CASE EVENT DATE: 20221101
